FAERS Safety Report 12299694 (Version 1)
Quarter: 2016Q2

REPORT INFORMATION
  Report Type: Spontaneous
  Country: US (occurrence: US)
  Receive Date: 20160425
  Receipt Date: 20160425
  Transmission Date: 20160815
  Serious: Yes (Hospitalization)
  Sender: FDA-Public Use
  Company Number: US-OCTA-GAM10016US

PATIENT
  Age: 65 Year
  Sex: Male
  Weight: 70 kg

DRUGS (1)
  1. OCTAGAM IMMUNE GLOBULIN (HUMAN) [Suspect]
     Active Substance: HUMAN IMMUNOGLOBULIN G
     Indication: IMMUNODEFICIENCY COMMON VARIABLE
     Route: 042
     Dates: start: 20160407, end: 20160407

REACTIONS (8)
  - Urticaria [None]
  - Erythema [Unknown]
  - Dizziness [Unknown]
  - Urticaria [Unknown]
  - Anxiety [Unknown]
  - Pruritus [Unknown]
  - Hypotension [Unknown]
  - Infusion related reaction [None]

NARRATIVE: CASE EVENT DATE: 20160407
